FAERS Safety Report 9417514 (Version 2)
Quarter: 2013Q4

REPORT INFORMATION
  Report Type: Spontaneous
  Country: US (occurrence: US)
  Receive Date: 20130724
  Receipt Date: 20131022
  Transmission Date: 20140711
  Serious: Yes (Hospitalization)
  Sender: FDA-Public Use
  Company Number: US-BRISTOL-MYERS SQUIBB COMPANY-19047802

PATIENT
  Age: 90 Year
  Sex: Female
  Weight: 110 kg

DRUGS (16)
  1. ELIQUIS [Suspect]
     Indication: ATRIAL FIBRILLATION
     Dosage: DOSE 2.5 MG
     Route: 048
     Dates: start: 20130605, end: 20130624
  2. TYLENOL [Concomitant]
  3. OYSTER SHELL CALCIUM [Concomitant]
  4. DIGOXIN [Concomitant]
  5. FERROUS SULFATE [Concomitant]
  6. SENNA [Concomitant]
  7. SENNA [Concomitant]
  8. LASIX [Concomitant]
  9. FLEET ENEMA [Concomitant]
  10. METOPROLOL [Concomitant]
  11. MIRTAZAPINE [Concomitant]
  12. MEGESTROL [Concomitant]
  13. NORCO [Concomitant]
  14. DULCOLAX [Concomitant]
  15. OYSTER SHELL CALCIUM [Concomitant]
  16. FLOMAX [Concomitant]

REACTIONS (1)
  - Lower gastrointestinal haemorrhage [Recovered/Resolved]
